FAERS Safety Report 22184129 (Version 4)
Quarter: 2024Q2

REPORT INFORMATION
  Report Type: Report from Study
  Country: US (occurrence: US)
  Receive Date: 20230407
  Receipt Date: 20240417
  Transmission Date: 20240717
  Serious: No
  Sender: FDA-Public Use
  Company Number: US-ACADIA PHARMACEUTICALS INC.-ACA-2023-PIM-001029

PATIENT
  Age: 77 Year
  Sex: Female

DRUGS (3)
  1. NUPLAZID [Suspect]
     Active Substance: PIMAVANSERIN TARTRATE
     Indication: Parkinson^s disease psychosis
     Dosage: 34 MILLIGRAM, QD
     Route: 048
     Dates: start: 202302, end: 20230316
  2. NUPLAZID [Suspect]
     Active Substance: PIMAVANSERIN TARTRATE
     Indication: Parkinson^s disease
     Dosage: 34 MILLIGRAM, QD
     Route: 048
  3. NUPLAZID [Suspect]
     Active Substance: PIMAVANSERIN TARTRATE
     Dosage: 34 MILLIGRAM, QD
     Route: 048

REACTIONS (10)
  - Adverse drug reaction [Recovered/Resolved]
  - Pain [Recovered/Resolved]
  - Eye irritation [Unknown]
  - Swelling face [Recovered/Resolved]
  - Periorbital swelling [Unknown]
  - Peripheral swelling [Unknown]
  - Hallucination [Recovered/Resolved]
  - Confusional state [Recovered/Resolved]
  - Hypersensitivity [Recovered/Resolved]
  - Peripheral swelling [Recovered/Resolved]

NARRATIVE: CASE EVENT DATE: 20230301
